FAERS Safety Report 15133721 (Version 1)
Quarter: 2018Q3

REPORT INFORMATION
  Report Type: Spontaneous
  Country: DE (occurrence: DE)
  Receive Date: 20180712
  Receipt Date: 20180712
  Transmission Date: 20181010
  Serious: Yes (Hospitalization, Other)
  Sender: FDA-Public Use
  Company Number: DE-AUROBINDO-AUR-APL-2018-035047

PATIENT
  Age: 48 Year
  Sex: Male

DRUGS (9)
  1. LEVETIRACETAM UCB [Suspect]
     Active Substance: LEVETIRACETAM
     Indication: SEIZURE
     Dosage: 1000 MILLIGRAM, TWO TIMES A DAY
     Route: 065
  2. VIMPAT [Suspect]
     Active Substance: LACOSAMIDE
     Dosage: 200 MILLIGRAM, TWO TIMES A DAY
  3. FAUSTAN [Concomitant]
     Active Substance: DIAZEPAM
     Indication: AGITATION
     Dosage: 10 MILLIGRAM, AS NECESSARY (PRN)
     Route: 065
  4. LEVETIRACETAM UCB [Suspect]
     Active Substance: LEVETIRACETAM
     Dosage: UNK
     Route: 065
  5. BRIVIACT [Suspect]
     Active Substance: BRIVARACETAM
     Indication: PRODUCT USED FOR UNKNOWN INDICATION
     Dosage: 100 MILLIGRAM, TWO TIMES A DAY
     Route: 065
  6. VIMPAT [Suspect]
     Active Substance: LACOSAMIDE
     Indication: SEIZURE
     Dosage: 300 MILLIGRAM, TWO TIMES A DAY
     Route: 065
  7. LEVETIRACETAM. [Suspect]
     Active Substance: LEVETIRACETAM
     Indication: SEIZURE
     Dosage: UNK
     Route: 065
  8. LEVETIRACETAM UCB [Suspect]
     Active Substance: LEVETIRACETAM
     Dosage: 1000 MILLIGRAM, ONCE A DAY (QD)
     Route: 065
  9. FAUSTAN [Concomitant]
     Active Substance: DIAZEPAM
     Dosage: 10 MG, AS NEEDED (PRN) ; AS NECESSARY

REACTIONS (7)
  - Aura [Unknown]
  - Blood pressure increased [Unknown]
  - Seizure [Unknown]
  - Off label use [Unknown]
  - Palpitations [Unknown]
  - Overdose [Unknown]
  - Drug ineffective [Unknown]
